FAERS Safety Report 6714772-4 (Version None)
Quarter: 2010Q2

REPORT INFORMATION
  Report Type: 
  Country: None (occurrence: None)
  Receive Date: 20100507
  Receipt Date: 20100429
  Transmission Date: 20101027
  Serious: No
  Sender: FDA-Public Use
  Company Number: US-BIOGENIDEC-2010BI014740

PATIENT
  Age: 30 Year
  Sex: Female

DRUGS (2)
  1. TYSABRI [Suspect]
     Indication: MULTIPLE SCLEROSIS
     Route: 042
     Dates: start: 20070712, end: 20080904
  2. TYSABRI [Suspect]
     Route: 042
     Dates: start: 20081106

REACTIONS (2)
  - MULTIPLE ALLERGIES [None]
  - NASOPHARYNGITIS [None]
